FAERS Safety Report 14966897 (Version 2)
Quarter: 2018Q2

REPORT INFORMATION
  Report Type: Spontaneous
  Country: CH (occurrence: CH)
  Receive Date: 20180604
  Receipt Date: 20180604
  Transmission Date: 20180711
  Serious: Yes (Other)
  Sender: FDA-Public Use
  Company Number: CH-TEVA-2018-CH-899367

PATIENT
  Age: 59 Year
  Sex: Male

DRUGS (7)
  1. CEFEPIME [Suspect]
     Active Substance: CEFEPIME HYDROCHLORIDE
     Indication: FEBRILE NEUTROPENIA
     Route: 065
     Dates: start: 20180508, end: 20180510
  2. ENDOXAN [Suspect]
     Active Substance: CYCLOPHOSPHAMIDE
     Dosage: AND 1 ADDITIONAL DOSE OF ENDOXAN WITH THE LAST DOSE ADMINISTERED ON 01-MAY-2018
     Route: 065
     Dates: start: 20180430
  3. NEXIUM [Suspect]
     Active Substance: ESOMEPRAZOLE MAGNESIUM
     Route: 065
     Dates: start: 20180503, end: 20180512
  4. IL-2 [Suspect]
     Active Substance: ALDESLEUKIN
     Dosage: AND 6 ADDITIONAL DOSES OF IL-2 WITH THE LAST DOSE ADMINISTERED ON 09-MAY-2018
     Route: 065
     Dates: start: 20180507
  5. IRFEN [Suspect]
     Active Substance: IBUPROFEN
     Route: 065
     Dates: start: 20180506, end: 20180508
  6. FLUDARABIN-TEVA [Suspect]
     Active Substance: FLUDARABINE PHOSPHATE
     Dosage: AND 4 ADDITIONAL DOSES OF FLUDARABINE WITH THE LAST DOSE ADMINISTERED ON 04-MAY-2018
     Route: 065
     Dates: start: 20180430
  7. BACTRIM [Suspect]
     Active Substance: SULFAMETHOXAZOLE\TRIMETHOPRIM
     Dosage: 1 TABLET(S) 3X PER WEEK (MONDAY, WEDNESDAY, FRIDAY)
     Route: 048
     Dates: start: 20180502, end: 20180511

REACTIONS (1)
  - Drug hypersensitivity [Recovering/Resolving]

NARRATIVE: CASE EVENT DATE: 20180504
